FAERS Safety Report 10058104 (Version 1)
Quarter: 2014Q2

REPORT INFORMATION
  Report Type: Spontaneous
  Country: US (occurrence: US)
  Receive Date: 20140404
  Receipt Date: 20140404
  Transmission Date: 20141212
  Serious: Yes (Other)
  Sender: FDA-Public Use
  Company Number: US-PFIZER INC-2014092720

PATIENT
  Age: 82 Year
  Sex: Male

DRUGS (1)
  1. SUTENT [Suspect]
     Indication: RENAL CANCER
     Dosage: 37.5 MG, CYCLIC (25MG AND 12.5MG DAILY, 7 DAYS ON, 7 DAYS OFF)
     Route: 048
     Dates: start: 20120910

REACTIONS (2)
  - Asthenia [Unknown]
  - Diarrhoea [Unknown]
